FAERS Safety Report 16260676 (Version 2)
Quarter: 2019Q2

REPORT INFORMATION
  Report Type: Other
  Country: GB (occurrence: GB)
  Receive Date: 20190501
  Receipt Date: 20190508
  Transmission Date: 20190711
  Serious: Yes (Other)
  Sender: FDA-Public Use
  Company Number: GB-HERITAGE PHARMACEUTICALS-2019HTG00188

PATIENT
  Age: 34 Year
  Sex: Female

DRUGS (1)
  1. NIFEDIPINE. [Suspect]
     Active Substance: NIFEDIPINE
     Indication: HYPERTENSION
     Dosage: 20 MG, 1X/DAY
     Route: 048
     Dates: start: 20181219, end: 20190304

REACTIONS (4)
  - Chest pain [Not Recovered/Not Resolved]
  - Back pain [Unknown]
  - Pruritus generalised [Unknown]
  - Insomnia [Unknown]

NARRATIVE: CASE EVENT DATE: 20181219
